FAERS Safety Report 4498810-8 (Version None)
Quarter: 2004Q4

REPORT INFORMATION
  Report Type: 
  Country: None (occurrence: None)
  Receive Date: 20041108
  Receipt Date: 20041020
  Transmission Date: 20050328
  Serious: Yes (Hospitalization)
  Sender: FDA-Public Use
  Company Number: A0530563A

PATIENT
  Age: 69 Year
  Sex: Male

DRUGS (6)
  1. NICORETTE [Suspect]
     Indication: EX-SMOKER
     Dosage: 4 MG/SEE DOSAGE TEXT/TRANSBUCC
     Route: 002
     Dates: start: 20010101
  2. NICODERM CQ [Suspect]
     Indication: EX-SMOKER
     Dosage: 21 MG/TRANSDERMAL
     Route: 062
     Dates: start: 20010101, end: 20010101
  3. SALBUTAMOL SULPHATE [Concomitant]
  4. BLOOD PRESSURE MEDICATION [Concomitant]
  5. PROSTATE MEDICATION [Concomitant]
  6. OXYGEN [Concomitant]

REACTIONS (3)
  - DISEASE RECURRENCE [None]
  - PNEUMONIA [None]
  - SINUS POLYP [None]
